FAERS Safety Report 13791814 (Version 1)
Quarter: 2017Q3

REPORT INFORMATION
  Report Type: Spontaneous
  Country: US (occurrence: US)
  Receive Date: 20170725
  Receipt Date: 20170725
  Transmission Date: 20171127
  Serious: No
  Sender: FDA-Public Use
  Company Number: US-009507513-1707USA007391

PATIENT
  Age: 30 Year
  Sex: Female
  Weight: 53.4 kg

DRUGS (1)
  1. NEXPLANON [Suspect]
     Active Substance: ETONOGESTREL
     Dosage: 1 IMPLANT IN THE LEFT ARM (NON-DOMINANT ARM, PATIENT^S ARM THIN), UNK
     Dates: start: 201507

REACTIONS (6)
  - Device deployment issue [Recovered/Resolved]
  - Complication associated with device [Recovered/Resolved]
  - Paraesthesia [Recovered/Resolved]
  - Difficulty removing drug implant [Recovered/Resolved]
  - Device difficult to use [Recovered/Resolved]
  - Implant site fibrosis [Recovered/Resolved]

NARRATIVE: CASE EVENT DATE: 201507
